FAERS Safety Report 7650001-5 (Version None)
Quarter: 2011Q3

REPORT INFORMATION
  Report Type: 
  Country: None (occurrence: None)
  Receive Date: 20110802
  Receipt Date: 20110728
  Transmission Date: 20111222
  Serious: Yes (Hospitalization, Other)
  Sender: FDA-Public Use
  Company Number: US-BRISTOL-MYERS SQUIBB COMPANY-15936669

PATIENT
  Age: 65 Year
  Sex: Female

DRUGS (2)
  1. ABILIFY [Suspect]
     Indication: DEPRESSION
     Dosage: TAKEN FOR SEVERAL WEEKS .
  2. COGENTIN [Suspect]
     Dosage: TAKEN FOR SEVERAL WEEKS .

REACTIONS (2)
  - DYSKINESIA [None]
  - FALL [None]
